FAERS Safety Report 24442332 (Version 1)
Quarter: 2024Q4

REPORT INFORMATION
  Report Type: Report from Study
  Country: US (occurrence: US)
  Receive Date: 20241016
  Receipt Date: 20241016
  Transmission Date: 20250115
  Serious: No
  Sender: DR REDDYS
  Company Number: US-DRL-USA-CLI/USA/24/0014833

PATIENT
  Age: 26 Year
  Sex: Female

DRUGS (1)
  1. JAVYGTOR [Suspect]
     Active Substance: SAPROPTERIN DIHYDROCHLORIDE
     Indication: Product used for unknown indication
     Dosage: DISSOLVE 4 PACKET IN WATER WITH APPLE JUICE DAILY
     Route: 048
     Dates: end: 20240827

REACTIONS (2)
  - Exposure during pregnancy [Unknown]
  - Circumstance or information capable of leading to medication error [Unknown]
